FAERS Safety Report 4727174-7 (Version None)
Quarter: 2005Q3

REPORT INFORMATION
  Report Type: 
  Country: None (occurrence: None)
  Receive Date: 20050701
  Receipt Date: 20050701
  Transmission Date: 20060218
  Serious: Yes (Other)
  Sender: FDA-Public Use
  Company Number: None

PATIENT
  Age: 79 Year
  Sex: Male
  Weight: 34.9 kg

DRUGS (20)
  1. CLONAZEPAM [Suspect]
  2. ALBUTEROL SULFATE AND IPRATROPIUM BROMIDE [Concomitant]
  3. DIPYRIDAMOLE [Concomitant]
  4. TERAZOSIN HCL [Concomitant]
  5. MONTELUKAST NA [Concomitant]
  6. ISOSOURCE [Concomitant]
  7. FORMOTEROL FUMARATE [Concomitant]
  8. ADALAT CC [Concomitant]
  9. GUAIFENESIN [Concomitant]
  10. OMEPRAZOLE [Concomitant]
  11. POTASSIUM CHLORIDE [Concomitant]
  12. CLONAZEPAM [Concomitant]
  13. ISOSORBIDE MONONITRATE [Concomitant]
  14. MULTIVITAMIN/MINERALS LIQUID [Concomitant]
  15. TRIAMCINOLONE [Concomitant]
  16. HYDROCHLOROTHIAZIDE [Concomitant]
  17. NITROGLYCERIN [Concomitant]
  18. IPRATROPIUM BROMIDE [Concomitant]
  19. ACETAMINOPHEN [Concomitant]
  20. ALBUTEROL [Concomitant]

REACTIONS (1)
  - CONFUSIONAL STATE [None]
